FAERS Safety Report 7298196-X (Version None)
Quarter: 2011Q1

REPORT INFORMATION
  Report Type: 
  Country: None (occurrence: None)
  Receive Date: 20110217
  Receipt Date: 20080828
  Transmission Date: 20110831
  Serious: Yes (Death, Other)
  Sender: FDA-Public Use
  Company Number: US-BAYER-2011-006267

PATIENT
  Sex: Male

DRUGS (2)
  1. TRASYLOL [Suspect]
     Dosage: UNK
     Dates: start: 20070522, end: 20070522
  2. TRASYLOL [Suspect]
     Indication: PRODUCT USED FOR UNKNOWN INDICATION
     Dosage: UNK
     Dates: start: 20060507, end: 20060507

REACTIONS (11)
  - RENAL IMPAIRMENT [None]
  - EMOTIONAL DISORDER [None]
  - STRESS [None]
  - UNEVALUABLE EVENT [None]
  - FEAR [None]
  - RENAL INJURY [None]
  - PAIN [None]
  - DEATH [None]
  - MULTI-ORGAN FAILURE [None]
  - RENAL FAILURE [None]
  - ANXIETY [None]
